FAERS Safety Report 20975861 (Version 1)
Quarter: 2022Q2

REPORT INFORMATION
  Report Type: Other
  Country: US (occurrence: None)
  Receive Date: 20220617
  Receipt Date: 20220617
  Transmission Date: 20220721
  Serious: No
  Sender: FDA-Public Use
  Company Number: US-ROCHE-2809316

PATIENT
  Age: 68 Year
  Sex: Female

DRUGS (5)
  1. OCREVUS [Suspect]
     Active Substance: OCRELIZUMAB
     Indication: Multiple sclerosis
     Dosage: INFUSE 300 MG DAY 1 AND DAY 15, THEN 600 MG EVERY 6 MONTHS, ?DATE OF TREATMENT: 23/OCT/2019, 24/APR/
     Route: 042
     Dates: start: 20191009, end: 20210428
  2. OCREVUS [Suspect]
     Active Substance: OCRELIZUMAB
     Route: 042
     Dates: start: 20191023
  3. BACLOFEN [Concomitant]
     Active Substance: BACLOFEN
  4. GABAPENTIN [Concomitant]
     Active Substance: GABAPENTIN
  5. FOLIC ACID [Concomitant]
     Active Substance: FOLIC ACID

REACTIONS (7)
  - Upper respiratory tract infection [Recovered/Resolved]
  - Bronchitis [Recovered/Resolved]
  - Off label use [Unknown]
  - Spinal osteoarthritis [Unknown]
  - Immunosuppression [Unknown]
  - B-lymphocyte count decreased [Unknown]
  - COVID-19 [Unknown]

NARRATIVE: CASE EVENT DATE: 20201001
